FAERS Safety Report 16225218 (Version 8)
Quarter: 2020Q2

REPORT INFORMATION
  Report Type: Report from Study
  Country: US (occurrence: US)
  Receive Date: 20190422
  Receipt Date: 20200616
  Transmission Date: 20200713
  Serious: Yes (Hospitalization)
  Sender: FDA-Public Use
  Company Number: US-ACTELION-A-US2019-189243

PATIENT
  Age: 9 Month
  Sex: Male

DRUGS (19)
  1. TRACLEER [Suspect]
     Active Substance: BOSENTAN
     Indication: PULMONARY ARTERIAL HYPERTENSION
     Dosage: 16 MG, BID
     Route: 048
     Dates: start: 20190311, end: 20200213
  2. TRACLEER [Suspect]
     Active Substance: BOSENTAN
     Dosage: 16 MG, BID (J-TUBE)
  3. PLAVIX [Concomitant]
     Active Substance: CLOPIDOGREL BISULFATE
     Dosage: 1.7 MG
  4. AMOXICILLIN. [Concomitant]
     Active Substance: AMOXICILLIN
  5. PREVALIN [Concomitant]
     Active Substance: CROMOLYN SODIUM
  6. TADALAFIL. [Concomitant]
     Active Substance: TADALAFIL
  7. EPANED [Concomitant]
     Active Substance: ENALAPRIL MALEATE
     Dosage: 0.2 ML, BID
     Route: 048
     Dates: start: 20190329
  8. TRIAMCINOLON [Concomitant]
  9. ERY-TAB [Concomitant]
     Active Substance: ERYTHROMYCIN
  10. NIZATIDINE. [Concomitant]
     Active Substance: NIZATIDINE
  11. IPRATROPIUM [Concomitant]
     Active Substance: IPRATROPIUM
  12. LEVALBUTEROL. [Concomitant]
     Active Substance: LEVALBUTEROL
  13. LASIX [Concomitant]
     Active Substance: FUROSEMIDE
  14. REVATIO [Concomitant]
     Active Substance: SILDENAFIL CITRATE
  15. BUDESONIDE. [Concomitant]
     Active Substance: BUDESONIDE
  16. OMEPRAZOLE. [Concomitant]
     Active Substance: OMEPRAZOLE
  17. CEFDINIR. [Concomitant]
     Active Substance: CEFDINIR
  18. SYNAGIS [Concomitant]
     Active Substance: PALIVIZUMAB
  19. ASPIRIN. [Concomitant]
     Active Substance: ASPIRIN
     Dosage: 40 MG, QD
     Dates: start: 20190329

REACTIONS (8)
  - Newborn persistent pulmonary hypertension [Unknown]
  - Product dose omission [Unknown]
  - Jejunostomy [Unknown]
  - Therapeutic embolisation [Unknown]
  - Respiratory syncytial virus infection [Unknown]
  - Cardiac operation [Unknown]
  - Catheterisation cardiac [Recovered/Resolved]
  - Alanine aminotransferase increased [Recovering/Resolving]

NARRATIVE: CASE EVENT DATE: 20190327
